FAERS Safety Report 6298888-5 (Version None)
Quarter: 2009Q3

REPORT INFORMATION
  Report Type: 
  Country: None (occurrence: None)
  Receive Date: 20090803
  Receipt Date: 20090730
  Transmission Date: 20100115
  Serious: Yes (Disabling)
  Sender: FDA-Public Use
  Company Number: S902331

PATIENT
  Age: 31 Year
  Sex: Male
  Weight: 92.9874 kg

DRUGS (1)
  1. OSMOPREP [Suspect]
     Indication: COLONOSCOPY
     Dosage: 1 DOSE ONLY, ORAL
     Route: 048
     Dates: start: 20090406, end: 20090406

REACTIONS (6)
  - LYMPHADENOPATHY [None]
  - PRURITUS GENERALISED [None]
  - RASH [None]
  - SWELLING FACE [None]
  - THROAT IRRITATION [None]
  - URTICARIA [None]
